FAERS Safety Report 25056922 (Version 1)
Quarter: 2025Q1

REPORT INFORMATION
  Report Type: Spontaneous
  Country: PL (occurrence: None)
  Receive Date: 20250310
  Receipt Date: 20250310
  Transmission Date: 20250409
  Serious: Yes (Hospitalization)
  Sender: INFORLIFE
  Company Number: PL-MLMSERVICE-20250220-PI424126-00029-2

PATIENT
  Age: 26 Year
  Sex: Female

DRUGS (16)
  1. SERTRALINE [Concomitant]
     Active Substance: SERTRALINE HYDROCHLORIDE
     Indication: Depression
  2. SERTRALINE [Concomitant]
     Active Substance: SERTRALINE HYDROCHLORIDE
     Indication: Depression
     Dosage: DOSE INCREASED
  3. ALPRAZOLAM [Suspect]
     Active Substance: ALPRAZOLAM
     Indication: Persistent genital arousal disorder
     Dosage: 3?0.5 MG
  4. CETIRIZINE [Suspect]
     Active Substance: CETIRIZINE HYDROCHLORIDE
     Indication: Persistent genital arousal disorder
  5. CIPROFLOXACIN [Suspect]
     Active Substance: CIPROFLOXACIN
     Indication: Persistent genital arousal disorder
  6. FLUCONAZOLE [Suspect]
     Active Substance: FLUCONAZOLE
     Indication: Persistent genital arousal disorder
     Route: 048
  7. FURAZIDINE [Suspect]
     Active Substance: FURAZIDINE
     Indication: Persistent genital arousal disorder
  8. AMOXICILLIN\CLAVULANIC ACID [Suspect]
     Active Substance: AMOXICILLIN\CLAVULANIC ACID
     Indication: Persistent genital arousal disorder
  9. HYDROXYZINE [Suspect]
     Active Substance: HYDROXYZINE HYDROCHLORIDE
     Indication: Persistent genital arousal disorder
  10. IBUPROFEN [Suspect]
     Active Substance: IBUPROFEN
     Indication: Persistent genital arousal disorder
  11. CLOTRIMAZOLE [Suspect]
     Active Substance: CLOTRIMAZOLE
     Indication: Persistent genital arousal disorder
     Route: 067
  12. ACETAMINOPHEN\CODEINE PHOSPHATE [Suspect]
     Active Substance: ACETAMINOPHEN\CODEINE PHOSPHATE
     Indication: Persistent genital arousal disorder
  13. ACETAMINOPHEN [Suspect]
     Active Substance: ACETAMINOPHEN
     Indication: Persistent genital arousal disorder
  14. NATAMYCIN [Suspect]
     Active Substance: NATAMYCIN
     Indication: Persistent genital arousal disorder
     Route: 067
  15. TIANEPTINE [Suspect]
     Active Substance: TIANEPTINE
     Indication: Persistent genital arousal disorder
  16. GENTAMICIN [Suspect]
     Active Substance: GENTAMICIN
     Indication: Persistent genital arousal disorder

REACTIONS (2)
  - Persistent genital arousal disorder [Recovered/Resolved]
  - Condition aggravated [Recovered/Resolved]
